FAERS Safety Report 24417043 (Version 1)
Quarter: 2024Q4

REPORT INFORMATION
  Report Type: Spontaneous
  Country: US (occurrence: US)
  Receive Date: 20241009
  Receipt Date: 20241009
  Transmission Date: 20250115
  Serious: No
  Sender: CB FLEET
  Company Number: US-PRESTIGE-202405-US-001691

PATIENT
  Age: 42 Year
  Sex: Female

DRUGS (2)
  1. MONISTAT 3 [Suspect]
     Active Substance: MICONAZOLE NITRATE
     Indication: Fungal infection
     Dosage: USED ALL THREE TREATMENT
     Route: 067
  2. LAMOTRIGINE [Concomitant]
     Active Substance: LAMOTRIGINE

REACTIONS (1)
  - Drug ineffective [Not Recovered/Not Resolved]
